FAERS Safety Report 7070761-4 (Version None)
Quarter: 2010Q4

REPORT INFORMATION
  Report Type: 
  Country: None (occurrence: None)
  Receive Date: 20101029
  Receipt Date: 20101021
  Transmission Date: 20110411
  Serious: Yes (Hospitalization)
  Sender: FDA-Public Use
  Company Number: IE-WYE-H18346810

PATIENT
  Age: 15 Year
  Sex: Female

DRUGS (8)
  1. PROTIUM [Suspect]
     Indication: GASTRIC HAEMORRHAGE
     Route: 048
  2. PIRITION [Concomitant]
  3. BUSCOPAN [Concomitant]
     Dosage: UNKNOWN
  4. RANITIDINE [Concomitant]
  5. TELFAST [Concomitant]
  6. MIGRALEVE [Concomitant]
     Dosage: UNKNOWN
  7. FLIXOTIDE [Concomitant]
  8. XYZAL [Concomitant]

REACTIONS (16)
  - ANGIOEDEMA [None]
  - ASTHENIA [None]
  - DRUG SCREEN POSITIVE [None]
  - DYSPHAGIA [None]
  - DYSPNOEA [None]
  - HEADACHE [None]
  - LETHARGY [None]
  - MYALGIA [None]
  - NONSPECIFIC REACTION [None]
  - OESOPHAGEAL OEDEMA [None]
  - PCO2 DECREASED [None]
  - RASH [None]
  - STRIDOR [None]
  - SWOLLEN TONGUE [None]
  - TEMPERATURE INTOLERANCE [None]
  - VISION BLURRED [None]
